FAERS Safety Report 13027309 (Version 7)
Quarter: 2019Q1

REPORT INFORMATION
  Report Type: Spontaneous
  Country: US (occurrence: US)
  Receive Date: 20161214
  Receipt Date: 20190130
  Transmission Date: 20190417
  Serious: Yes (Other)
  Sender: FDA-Public Use
  Company Number: US-PFIZER INC-2016521777

PATIENT
  Age: 68 Year
  Sex: Male
  Weight: 68 kg

DRUGS (9)
  1. METOPROLOL. [Concomitant]
     Active Substance: METOPROLOL
     Indication: CARDIAC FAILURE CONGESTIVE
     Dosage: 25 MG, 1X/DAY
  2. MORPHINE [Concomitant]
     Active Substance: MORPHINE
     Indication: PAIN
     Dosage: 60 MG, 2X/DAY
  3. LYRICA [Suspect]
     Active Substance: PREGABALIN
     Indication: LUMBAR RADICULOPATHY
  4. PERCOCET [Concomitant]
     Active Substance: ACETAMINOPHEN\OXYCODONE HYDROCHLORIDE
     Dosage: 10 MG, UNK
  5. LYRICA [Suspect]
     Active Substance: PREGABALIN
     Indication: NEURALGIA
     Dosage: 300 MG, 3X/DAY(1 CAPSULE(S) 3 TIMES A DAY )
     Route: 048
     Dates: end: 20181001
  6. PLAVIX [Concomitant]
     Active Substance: CLOPIDOGREL BISULFATE
     Indication: CARDIAC FAILURE CONGESTIVE
     Dosage: 75 MG, 1X/DAY
  7. OXYCODONE [Concomitant]
     Active Substance: OXYCODONE
     Indication: PAIN
     Dosage: UNK, AS NEEDED (EVERY 6 HOURS)
  8. LYRICA [Suspect]
     Active Substance: PREGABALIN
     Indication: NEUROPATHY PERIPHERAL
     Dosage: 150 MG, 2X/DAY
     Route: 048
     Dates: start: 20160827
  9. LYRICA [Suspect]
     Active Substance: PREGABALIN
     Indication: RADICULOPATHY

REACTIONS (13)
  - Pyrexia [Recovering/Resolving]
  - Condition aggravated [Not Recovered/Not Resolved]
  - Prescribed overdose [Unknown]
  - Malaise [Recovering/Resolving]
  - Dyspnoea [Not Recovered/Not Resolved]
  - Sleep disorder [Not Recovered/Not Resolved]
  - Nausea [Not Recovered/Not Resolved]
  - Influenza [Recovering/Resolving]
  - Feeling abnormal [Not Recovered/Not Resolved]
  - Withdrawal syndrome [Not Recovered/Not Resolved]
  - Abdominal discomfort [Not Recovered/Not Resolved]
  - Neuropathy peripheral [Not Recovered/Not Resolved]
  - Pain [Not Recovered/Not Resolved]

NARRATIVE: CASE EVENT DATE: 20161128
